FAERS Safety Report 8686397 (Version 2)
Quarter: 2018Q1

REPORT INFORMATION
  Report Type: Spontaneous
  Country: US (occurrence: US)
  Receive Date: 20120726
  Receipt Date: 20180213
  Transmission Date: 20180509
  Serious: Yes (Other)
  Sender: FDA-Public Use
  Company Number: US-ASTRAZENECA-2011SE55236

PATIENT
  Age: 46 Year
  Sex: Female

DRUGS (3)
  1. DILANTIN [Concomitant]
     Active Substance: PHENYTOIN
  2. SEROQUEL XR [Suspect]
     Active Substance: QUETIAPINE FUMARATE
     Indication: SUICIDAL IDEATION
     Dosage: 400.0MG UNKNOWN
     Route: 048
  3. SEROQUEL XR [Suspect]
     Active Substance: QUETIAPINE FUMARATE
     Indication: TACHYPHRENIA
     Dosage: 400.0MG UNKNOWN
     Route: 048

REACTIONS (8)
  - Nervousness [Unknown]
  - Bipolar disorder [Unknown]
  - Drug prescribing error [Unknown]
  - Drug dose omission [Unknown]
  - Visual impairment [Unknown]
  - Seizure [Unknown]
  - Crying [Unknown]
  - Insomnia [Unknown]
